FAERS Safety Report 11133437 (Version 1)
Quarter: 2015Q2

REPORT INFORMATION
  Report Type: Report from Study
  Country: NZ (occurrence: NZ)
  Receive Date: 20150522
  Receipt Date: 20150522
  Transmission Date: 20150821
  Serious: Yes (Hospitalization)
  Sender: FDA-Public Use
  Company Number: PHHY2014NZ137090

PATIENT
  Age: 25 Year
  Sex: Female
  Weight: 81.2 kg

DRUGS (3)
  1. LACTULOSE. [Concomitant]
     Active Substance: LACTULOSE
     Indication: PRODUCT USED FOR UNKNOWN INDICATION
     Dosage: 15 ML, BID
     Route: 048
     Dates: start: 20140708, end: 20141007
  2. CLOZARIL [Suspect]
     Active Substance: CLOZAPINE
     Indication: PSYCHOTIC DISORDER
     Dosage: 300 MG, QHS
     Route: 048
     Dates: start: 20090101, end: 20141007
  3. CLOZARIL [Suspect]
     Active Substance: CLOZAPINE
     Indication: SCHIZOPHRENIA

REACTIONS (7)
  - Underdose [Unknown]
  - Weight increased [Recovering/Resolving]
  - Alcohol withdrawal syndrome [Unknown]
  - Salivary hypersecretion [Recovering/Resolving]
  - Anosognosia [Unknown]
  - Sedation [Recovering/Resolving]
  - Constipation [Recovering/Resolving]

NARRATIVE: CASE EVENT DATE: 20141003
